FAERS Safety Report 5481301-5 (Version None)
Quarter: 2007Q4

REPORT INFORMATION
  Report Type: 
  Country: None (occurrence: None)
  Receive Date: 20071005
  Receipt Date: 20071005
  Transmission Date: 20080405
  Serious: Yes (Hospitalization)
  Sender: FDA-Public Use
  Company Number: None

PATIENT
  Age: 30 Year
  Sex: Female
  Weight: 92 kg

DRUGS (8)
  1. BEVACIZUMB [Suspect]
     Indication: ANAPLASTIC ASTROCYTOMA
     Dosage: 10MG/KG QOW
  2. TARCEVA [Suspect]
     Indication: ANAPLASTIC ASTROCYTOMA
     Dosage: 200MG PO QD
     Route: 048
  3. KEPPRA [Concomitant]
  4. MINOCYCLINE HCL [Concomitant]
  5. FLAGYL [Concomitant]
  6. PROTONIX [Concomitant]
  7. LOTREL [Concomitant]
  8. POTASSIUM CHLORIDE [Concomitant]

REACTIONS (7)
  - CATHETER RELATED COMPLICATION [None]
  - CATHETER SITE ERYTHEMA [None]
  - CLOSTRIDIUM DIFFICILE COLITIS [None]
  - DIARRHOEA [None]
  - ENTEROCOLITIS INFECTIOUS [None]
  - INFECTION [None]
  - PURULENT DISCHARGE [None]
